FAERS Safety Report 7809798-3 (Version None)
Quarter: 2011Q4

REPORT INFORMATION
  Report Type: 
  Country: None (occurrence: None)
  Receive Date: 20111012
  Receipt Date: 20111004
  Transmission Date: 20120403
  Serious: Yes (Hospitalization, Other)
  Sender: FDA-Public Use
  Company Number: US-BAYER-201029099NA

PATIENT
  Sex: Female
  Weight: 53.968 kg

DRUGS (2)
  1. YASMIN [Suspect]
     Indication: ORAL CONTRACEPTION
     Dosage: UNK UNK, UNK
     Route: 048
     Dates: start: 20050301, end: 20070601
  2. DICYCLOMINE [Concomitant]
     Dosage: UNK
     Dates: start: 20061101, end: 20061201

REACTIONS (3)
  - NAUSEA [None]
  - GALLBLADDER DISORDER [None]
  - ABDOMINAL PAIN [None]
